FAERS Safety Report 8507842-1 (Version None)
Quarter: 2012Q3

REPORT INFORMATION
  Report Type: 
  Country: None (occurrence: None)
  Receive Date: 20120713
  Receipt Date: 20120702
  Transmission Date: 20120928
  Serious: Yes (Hospitalization)
  Sender: FDA-Public Use
  Company Number: US-JNJFOC-20120611690

PATIENT
  Sex: Female
  Weight: 52.62 kg

DRUGS (5)
  1. ZINC SULFATE [Concomitant]
  2. KENALOG [Concomitant]
  3. SELENIUM [Concomitant]
  4. RETIN-A [Concomitant]
  5. REMICADE [Suspect]
     Indication: CROHN'S DISEASE
     Route: 042
     Dates: start: 20091125, end: 20120601

REACTIONS (1)
  - CROHN'S DISEASE [None]
